FAERS Safety Report 18469499 (Version 1)
Quarter: 2020Q4

REPORT INFORMATION
  Report Type: Spontaneous
  Country: US (occurrence: US)
  Receive Date: 20201105
  Receipt Date: 20201105
  Transmission Date: 20210114
  Serious: Yes (Hospitalization)
  Sender: FDA-Public Use
  Company Number: US-TEVA-2020-US-1844775

PATIENT
  Age: 85 Year
  Sex: Female
  Weight: 92.08 kg

DRUGS (3)
  1. LYRICA [Suspect]
     Active Substance: PREGABALIN
     Route: 065
  2. OXYBUTYNIN. [Suspect]
     Active Substance: OXYBUTYNIN CHLORIDE
     Route: 065
  3. CYMBALTA [Suspect]
     Active Substance: DULOXETINE HYDROCHLORIDE
     Route: 065

REACTIONS (3)
  - Wrong technique in product usage process [Unknown]
  - Asthenia [Unknown]
  - Foreign body in respiratory tract [Unknown]

NARRATIVE: CASE EVENT DATE: 20201001
